FAERS Safety Report 9525565 (Version 1)
Quarter: 2013Q3

REPORT INFORMATION
  Report Type: Spontaneous
  Country: US (occurrence: US)
  Receive Date: 20130916
  Receipt Date: 20130916
  Transmission Date: 20140515
  Serious: Yes (Hospitalization)
  Sender: FDA-Public Use
  Company Number: US-MYLANLABS-2013S1019896

PATIENT
  Age: 54 Year
  Sex: Male

DRUGS (5)
  1. FLUOROURACIL [Suspect]
     Indication: COLON CANCER STAGE III
     Dosage: INFUSIONS; PART OF FOLFOX CHEMOTHERAPY
     Route: 050
  2. XELODA [Suspect]
     Indication: COLON CANCER STAGE III
     Dosage: 1600 MG/M2/24; PART OF XELOX CHEMOTHERAPY
     Route: 048
  3. OXALIPLATIN [Concomitant]
     Indication: COLON CANCER STAGE III
     Dosage: PART OF FOLFOX CHEMOTHERAPY
     Route: 065
  4. FOLINIC ACID [Concomitant]
     Indication: COLON CANCER STAGE III
     Dosage: PART OF FOLFOX CHEMOTHERAPY
     Route: 065
  5. OXALIPLATIN [Concomitant]
     Indication: COLON CANCER STAGE III
     Dosage: PART OF XELOX CHEMOTHERAPY
     Route: 065

REACTIONS (1)
  - Cardiotoxicity [Recovered/Resolved]
